FAERS Safety Report 5262326-1 (Version None)
Quarter: 2007Q1

REPORT INFORMATION
  Report Type: 
  Country: None (occurrence: None)
  Receive Date: 20070308
  Receipt Date: 20070308
  Transmission Date: 20070707
  Serious: Yes (Hospitalization)
  Sender: FDA-Public Use
  Company Number: None

PATIENT
  Sex: Female
  Weight: 67 kg

DRUGS (3)
  1. TEMOZOLOMIDE [Suspect]
     Dosage: 4750 MG
  2. TEMOZOLOMIDE [Suspect]
  3. TEMOZOLOMIDE [Suspect]

REACTIONS (6)
  - GALLBLADDER DISORDER [None]
  - GALLBLADDER PAIN [None]
  - NAUSEA [None]
  - PANCYTOPENIA [None]
  - PLATELET COUNT DECREASED [None]
  - VOMITING [None]
